FAERS Safety Report 4528529-6 (Version None)
Quarter: 2004Q4

REPORT INFORMATION
  Report Type: 
  Country: None (occurrence: None)
  Receive Date: 20041216
  Receipt Date: 20040812
  Transmission Date: 20050328
  Serious: No
  Sender: FDA-Public Use
  Company Number: US-BRISTOL-MYERS SQUIBB COMPANY-12669545

PATIENT
  Age: 59 Year
  Sex: Female

DRUGS (1)
  1. QUESTRAN [Suspect]
     Indication: NEPHROLITHIASIS
     Dosage: DOSE FREQUENCY: ^EVERY MEAL^
     Route: 048

REACTIONS (1)
  - NAUSEA [None]
